FAERS Safety Report 6456742-X (Version None)
Quarter: 2009Q4

REPORT INFORMATION
  Report Type: 
  Country: None (occurrence: None)
  Receive Date: 20091120
  Receipt Date: 20091110
  Transmission Date: 20100525
  Serious: Yes (Other)
  Sender: FDA-Public Use
  Company Number: MC200900379

PATIENT
  Age: 80 Year
  Sex: Female
  Weight: 87.1 kg

DRUGS (1)
  1. ANGIOMAX [Suspect]
     Indication: PERCUTANEOUS CORONARY INTERVENTION
     Dosage: 0.75 MG/KG, BOLUS, INTRAVENOUS; 1.75 MG/KG/ HR, INTRAVENOUS
     Route: 042
     Dates: start: 20090923, end: 20090923

REACTIONS (4)
  - BACK PAIN [None]
  - HYPERTENSION [None]
  - MEDICAL DEVICE COMPLICATION [None]
  - VASCULAR PSEUDOANEURYSM [None]
